FAERS Safety Report 8988693 (Version 1)
Quarter: 2012Q4

REPORT INFORMATION
  Report Type: 
  Country: NL (occurrence: NL)
  Receive Date: 20121228
  Receipt Date: 20121228
  Transmission Date: 20130627
  Serious: Yes (Hospitalization)
  Sender: FDA-Public Use
  Company Number: PHHO2012NL018497

PATIENT
  Age: 68 Year
  Sex: Female
  Weight: 89 kg

DRUGS (13)
  1. BLINDED NO TREATMENT RECEIVED [Suspect]
     Indication: CHRONIC OBSTRUCTIVE PULMONARY DISEASE
     Dosage: Code not broken
     Route: 048
     Dates: start: 20121022, end: 20121119
  2. BLINDED NVA237 [Suspect]
     Indication: CHRONIC OBSTRUCTIVE PULMONARY DISEASE
     Dosage: Code not broken
     Route: 048
     Dates: start: 20121022, end: 20121119
  3. BLINDED PLACEBO [Suspect]
     Indication: CHRONIC OBSTRUCTIVE PULMONARY DISEASE
     Dosage: Code not broken
     Route: 048
     Dates: start: 20121022, end: 20121119
  4. BLINDED QAB149 [Suspect]
     Indication: CHRONIC OBSTRUCTIVE PULMONARY DISEASE
     Dosage: Code not broken
     Route: 048
     Dates: start: 20121022, end: 20121119
  5. BLINDED QVA149 [Suspect]
     Indication: CHRONIC OBSTRUCTIVE PULMONARY DISEASE
     Dosage: Code not broken
     Route: 048
     Dates: start: 20121022, end: 20121119
  6. SERETIDE DISKUS [Concomitant]
     Indication: CHRONIC OBSTRUCTIVE PULMONARY DISEASE
     Dosage: 50/250 ug
     Dates: start: 19990427, end: 20121211
  7. SPIRIVA [Concomitant]
     Indication: CHRONIC OBSTRUCTIVE PULMONARY DISEASE
     Dosage: 18 ug, QD
     Dates: start: 20120726, end: 20121211
  8. VENTOLINE [Concomitant]
     Indication: CHRONIC OBSTRUCTIVE PULMONARY DISEASE
     Dosage: 100 ug, PRN
     Dates: start: 19991125
  9. ASCAL [Concomitant]
     Indication: MYOCARDIAL ISCHAEMIA
     Dosage: 100 mg, UNK
     Route: 048
     Dates: start: 200611
  10. SIMVASTATINE [Concomitant]
     Indication: MYOCARDIAL ISCHAEMIA
     Dosage: 40 mg, UNK
     Route: 048
     Dates: start: 20120924
  11. LOSARTAN + HIDROCLOROTIAZIDA [Concomitant]
     Indication: HYPERTENSION
     Dosage: 1 DF, UNK
     Route: 048
     Dates: start: 20100722, end: 20121211
  12. MONOKET [Concomitant]
     Indication: MYOCARDIAL ISCHAEMIA
     Dosage: 50 mg, QD
     Route: 048
     Dates: start: 20121211, end: 20121211
  13. OCULOTECT [Concomitant]
     Indication: DRY EYE
     Dosage: 1 drp, QD
     Dates: start: 20100720

REACTIONS (1)
  - Pyelonephritis [Not Recovered/Not Resolved]
